FAERS Safety Report 21499051 (Version 1)
Quarter: 2022Q4

REPORT INFORMATION
  Report Type: Spontaneous
  Country: US (occurrence: None)
  Receive Date: 20221022
  Receipt Date: 20221022
  Transmission Date: 20230113
  Serious: Yes (Other)
  Sender: FDA-Public Use
  Company Number: None

PATIENT
  Age: 43 Year
  Sex: Female
  Weight: 76.5 kg

DRUGS (4)
  1. UP AND UP ALLERGY RELIEF (CETIRIZINE HYDROCHLORIDE) [Suspect]
     Active Substance: CETIRIZINE HYDROCHLORIDE
     Indication: Autoimmune disorder
     Dosage: OTHER QUANTITY : 1 TABLET(S);?FREQUENCY : AT BEDTIME;?
     Route: 048
     Dates: start: 20221019, end: 20221022
  2. VITAMINS [Concomitant]
     Active Substance: VITAMINS
  3. Vitamin d/calcium supplement [Concomitant]
  4. women^s probiotic [Concomitant]

REACTIONS (1)
  - Urticaria [None]

NARRATIVE: CASE EVENT DATE: 20221021
